FAERS Safety Report 14301812 (Version 1)
Quarter: 2017Q4

REPORT INFORMATION
  Report Type: Spontaneous
  Country: US (occurrence: US)
  Receive Date: 20171219
  Receipt Date: 20171219
  Transmission Date: 20180321
  Serious: No
  Sender: FDA-Public Use
  Company Number: US-SUPERNUS PHARMACEUTICALS, INC.-2017SUP00149

PATIENT
  Sex: Male
  Weight: 117.91 kg

DRUGS (4)
  1. OXTELLAR XR [Suspect]
     Active Substance: OXCARBAZEPINE
     Indication: EPILEPSY
     Dosage: 900 MG, 2X/DAY
     Route: 048
     Dates: start: 2014
  2. OXTELLAR XR [Suspect]
     Active Substance: OXCARBAZEPINE
     Indication: SEIZURE
  3. LEVETIRACETAM. [Concomitant]
     Active Substance: LEVETIRACETAM
  4. CITRULLINE [Concomitant]
     Active Substance: CITRULLINE
     Dosage: AT BEDTIME

REACTIONS (1)
  - Tremor [Recovered/Resolved]
